FAERS Safety Report 4341887-0 (Version None)
Quarter: 2004Q2

REPORT INFORMATION
  Report Type: 
  Country: None (occurrence: None)
  Receive Date: 20040415
  Receipt Date: 20040402
  Transmission Date: 20050107
  Serious: Yes (Hospitalization)
  Sender: FDA-Public Use
  Company Number: 23595

PATIENT
  Sex: Female

DRUGS (1)
  1. HIPREX [Suspect]
     Indication: URINARY TRACT INFECTION
     Dosage: 2 GM (1 GM, 2 IN 1 DAY (S)) ORAL
     Route: 048
     Dates: start: 20040226

REACTIONS (12)
  - ACIDOSIS HYPERCHLORAEMIC [None]
  - ACUTE PRERENAL FAILURE [None]
  - ANION GAP INCREASED [None]
  - DEHYDRATION [None]
  - DYSPNOEA [None]
  - GASTROINTESTINAL DISORDER [None]
  - HYPERVENTILATION [None]
  - HYPOTENSION [None]
  - MARKEDLY REDUCED DIETARY INTAKE [None]
  - PANCREATITIS ACUTE [None]
  - RENAL FAILURE [None]
  - WEIGHT DECREASED [None]
